FAERS Safety Report 9377654 (Version 1)
Quarter: 2013Q3

REPORT INFORMATION
  Report Type: Spontaneous
  Country: FR (occurrence: FR)
  Receive Date: 20130701
  Receipt Date: 20130701
  Transmission Date: 20140515
  Serious: Yes (Hospitalization)
  Sender: FDA-Public Use
  Company Number: FR-PFIZER INC-2004207051FR

PATIENT
  Age: 23 Year
  Sex: Female
  Weight: 72 kg

DRUGS (11)
  1. TRIFLUCAN [Suspect]
     Indication: ILL-DEFINED DISORDER
     Dosage: 400 MG, DAILY
     Route: 042
     Dates: start: 20031124, end: 20031206
  2. TRIFLUCAN [Suspect]
     Indication: INFECTION
  3. PANTOPRAZOLE [Suspect]
     Indication: ILL-DEFINED DISORDER
     Dosage: 40 MG, DAILY
     Route: 042
     Dates: start: 20031124, end: 20031204
  4. PANTOPRAZOLE [Suspect]
     Indication: INFECTION
  5. LEVOFLOXACIN [Suspect]
     Indication: ILL-DEFINED DISORDER
     Dosage: 125 MG, DAILY
     Route: 042
     Dates: start: 20031124, end: 20031206
  6. LEVOFLOXACIN [Suspect]
     Indication: INFECTION
  7. VANCOMYCIN HCL [Suspect]
     Indication: ILL-DEFINED DISORDER
     Dosage: 1 G, DAILY
     Route: 042
     Dates: start: 20031124, end: 20031206
  8. HEPARIN CALCIUM [Suspect]
     Indication: ILL-DEFINED DISORDER
     Route: 058
     Dates: start: 20031205, end: 20031215
  9. MEROPENEM [Suspect]
     Indication: ILL-DEFINED DISORDER
     Dosage: 2.45 G, DAILY
     Route: 042
     Dates: start: 20031124, end: 20031206
  10. CEFTRIAXONE SODIUM [Concomitant]
     Dosage: UNK
     Dates: start: 200311
  11. ACICLOVIR [Concomitant]
     Dosage: UNK
     Dates: start: 200311

REACTIONS (8)
  - Agranulocytosis [Recovered/Resolved]
  - Leukopenia [Recovered/Resolved]
  - Encephalitis [Unknown]
  - Systemic lupus erythematosus [Unknown]
  - Nervous system disorder [Unknown]
  - Histiocytosis haematophagic [Unknown]
  - Multi-organ failure [Unknown]
  - Aortic valve incompetence [Unknown]
